FAERS Safety Report 23483377 (Version 2)
Quarter: 2024Q1

REPORT INFORMATION
  Report Type: Spontaneous
  Country: US (occurrence: US)
  Receive Date: 20240205
  Receipt Date: 20240326
  Transmission Date: 20240409
  Serious: No
  Sender: FDA-Public Use
  Company Number: US-862174955-ML2024-00549

PATIENT
  Age: 68 Year
  Sex: Female

DRUGS (3)
  1. KETOROLAC [Suspect]
     Active Substance: KETOROLAC TROMETHAMINE
     Indication: Cataract operation
     Dosage: 01 DROP IN RIGHT EYE
     Route: 047
     Dates: start: 20240105
  2. PREDNISOLONE [Concomitant]
     Active Substance: PREDNISOLONE
     Indication: Product used for unknown indication
     Dosage: 5 ML WHICH SHE USES 4 TIMES A DAY
  3. MOXIFLOXACIN [Concomitant]
     Active Substance: MOXIFLOXACIN
     Indication: Product used for unknown indication
     Dosage: 04 TIMES A DAY FOR ONE WEEK (3 ML)

REACTIONS (4)
  - Eye irritation [Unknown]
  - Eye pain [Unknown]
  - Product dose omission issue [Unknown]
  - Product packaging quantity issue [Unknown]

NARRATIVE: CASE EVENT DATE: 20240122
